FAERS Safety Report 10013518 (Version 5)
Quarter: 2014Q2

REPORT INFORMATION
  Report Type: Spontaneous
  Country: US (occurrence: US)
  Receive Date: 20140314
  Receipt Date: 20140630
  Transmission Date: 20141212
  Serious: No
  Sender: FDA-Public Use
  Company Number: US-GILEAD-2014-0096814

PATIENT
  Sex: Female

DRUGS (3)
  1. LETAIRIS [Suspect]
     Indication: PULMONARY ARTERIAL HYPERTENSION
     Dosage: 10 MG, QD
     Route: 065
     Dates: start: 20130320
  2. TYVASO [Concomitant]
  3. REVATIO [Concomitant]

REACTIONS (4)
  - Dry mouth [Unknown]
  - Cardiac flutter [Unknown]
  - Fatigue [Unknown]
  - Palpitations [Unknown]
